FAERS Safety Report 8129518-5 (Version None)
Quarter: 2012Q1

REPORT INFORMATION
  Report Type: 
  Country: None (occurrence: None)
  Receive Date: 20120210
  Receipt Date: 20120208
  Transmission Date: 20120608
  Serious: No
  Sender: FDA-Public Use
  Company Number: US-PFIZER INC-2012025147

PATIENT
  Sex: Female

DRUGS (2)
  1. CHANTIX [Suspect]
     Dosage: UNK
     Route: 048
     Dates: start: 20120101
  2. CHANTIX [Suspect]
     Indication: SMOKING CESSATION THERAPY
     Dosage: 0.5 MG, 1X/DAY
     Route: 048
     Dates: start: 20120126, end: 20120101

REACTIONS (7)
  - OEDEMA PERIPHERAL [None]
  - SINUS DISORDER [None]
  - FAECES DISCOLOURED [None]
  - PRODUCTIVE COUGH [None]
  - MUCOSAL DISCOLOURATION [None]
  - DRUG INEFFECTIVE [None]
  - JOINT SWELLING [None]
